FAERS Safety Report 25873341 (Version 1)
Quarter: 2025Q4

REPORT INFORMATION
  Report Type: Spontaneous
  Country: US (occurrence: US)
  Receive Date: 20251002
  Receipt Date: 20251002
  Transmission Date: 20260118
  Serious: No
  Sender: RECKITT BENCKISER
  Company Number: US-INDIVIOR US-INDV-158326-2024

PATIENT
  Age: 31 Year
  Sex: Female

DRUGS (2)
  1. SUBLOCADE [Suspect]
     Active Substance: BUPRENORPHINE
     Indication: Product used for unknown indication
     Dosage: UNK , QMO (INITIAL DOSE)
     Route: 065
     Dates: start: 202410
  2. SUBLOCADE [Suspect]
     Active Substance: BUPRENORPHINE
     Dosage: UNK, QMO (GAVE THE SHOT RIGHT UNDER BREAST)
     Route: 065
     Dates: start: 20241206

REACTIONS (9)
  - Product administered at inappropriate site [Recovered/Resolved]
  - Syncope [Recovering/Resolving]
  - Dizziness [Recovering/Resolving]
  - Injection site erosion [Recovering/Resolving]
  - Injection site discharge [Recovered/Resolved]
  - Injection site erythema [Recovering/Resolving]
  - Injection site pruritus [Recovering/Resolving]
  - Injection site irritation [Recovering/Resolving]
  - Vomiting [Recovering/Resolving]

NARRATIVE: CASE EVENT DATE: 20241201
